FAERS Safety Report 16169222 (Version 1)
Quarter: 2019Q2

REPORT INFORMATION
  Report Type: Spontaneous
  Country: US (occurrence: US)
  Receive Date: 20190408
  Receipt Date: 20190408
  Transmission Date: 20190711
  Serious: Yes (Hospitalization, Other)
  Sender: FDA-Public Use
  Company Number: US-SA-2019SA096453

PATIENT
  Age: 61 Year
  Sex: Male

DRUGS (10)
  1. MIRALAX [Concomitant]
     Active Substance: POLYETHYLENE GLYCOL 3350
  2. METOPROLOL TARTRATE. [Concomitant]
     Active Substance: METOPROLOL TARTRATE
  3. NOVOLOG [Concomitant]
     Active Substance: INSULIN ASPART
  4. OXYCODONE [Concomitant]
     Active Substance: OXYCODONE
  5. TOUJEO [Concomitant]
     Active Substance: INSULIN GLARGINE
  6. TRULICITY [Concomitant]
     Active Substance: DULAGLUTIDE
  7. PRALUENT [Suspect]
     Active Substance: ALIROCUMAB
     Dosage: 150 MG, UNK
     Dates: start: 201901
  8. PROAIR [FLUTICASONE PROPIONATE] [Concomitant]
     Active Substance: FLUTICASONE PROPIONATE
  9. LISINOPRIL. [Concomitant]
     Active Substance: LISINOPRIL
  10. SINGULAIR [Concomitant]
     Active Substance: MONTELUKAST SODIUM

REACTIONS (1)
  - Hepatitis acute [Unknown]
